FAERS Safety Report 4722360-4 (Version None)
Quarter: 2005Q3

REPORT INFORMATION
  Report Type: 
  Country: None (occurrence: None)
  Receive Date: 20050722
  Receipt Date: 20050308
  Transmission Date: 20060218
  Serious: No
  Sender: FDA-Public Use
  Company Number: US-GLAXOSMITHKLINE-A0548840A

PATIENT
  Age: 67 Year
  Sex: Female

DRUGS (4)
  1. AVANDIA [Suspect]
     Dosage: 4MG PER DAY
     Route: 048
     Dates: start: 20041201
  2. SYNTHROID [Concomitant]
  3. AVALIDE [Concomitant]
  4. TOPROL-XL [Concomitant]

REACTIONS (1)
  - BACK PAIN [None]
